APPROVED DRUG PRODUCT: POTASSIUM CHLORIDE 40MEQ IN DEXTROSE 5% AND SODIUM CHLORIDE 0.45%
Active Ingredient: DEXTROSE; POTASSIUM CHLORIDE; SODIUM CHLORIDE
Strength: 5GM/100ML;298MG/100ML;450MG/100ML
Dosage Form/Route: INJECTABLE;INJECTION
Application: A213523 | Product #004 | TE Code: AP
Applicant: FRESENIUS KABI USA LLC
Approved: Mar 9, 2021 | RLD: No | RS: No | Type: RX